FAERS Safety Report 9520388 (Version 2)
Quarter: 2013Q3

REPORT INFORMATION
  Report Type: Spontaneous
  Country: US (occurrence: US)
  Receive Date: 20130912
  Receipt Date: 20130912
  Transmission Date: 20140515
  Serious: Yes (Other)
  Sender: FDA-Public Use
  Company Number: US-RB-053202-13

PATIENT
  Age: 18 Year
  Sex: Female

DRUGS (6)
  1. GENERIC BUPRENORPHINE [Suspect]
     Indication: DRUG DEPENDENCE
     Route: 060
     Dates: start: 20130403
  2. HEROIN [Suspect]
     Indication: PRODUCT USED FOR UNKNOWN INDICATION
     Dosage: DOSING DETAILS UNKNOWN; THE PATIENT WAS ON AND OFF ON HEROIN
     Route: 065
     Dates: start: 20130420, end: 20130506
  3. ONDANSETRON [Concomitant]
     Indication: NAUSEA
     Dosage: 2 TIMES DAILY AS NEEDED
     Route: 065
  4. PRENATAL VITAMIN [Concomitant]
     Indication: PREGNANCY
     Dosage: UNKNOWN DOSING DETAILS
     Route: 065
  5. FAMOTIDINE [Concomitant]
     Indication: GASTROOESOPHAGEAL REFLUX DISEASE
     Route: 065
  6. NICOTINE [Concomitant]
     Indication: PRODUCT USED FOR UNKNOWN INDICATION
     Dosage: 5 CIGARETTES PER DAY
     Route: 055
     Dates: start: 20121118

REACTIONS (4)
  - Maternal exposure during pregnancy [Recovered/Resolved]
  - Drug abuse [Recovered/Resolved]
  - Retained placenta or membranes [Recovered/Resolved]
  - Haemorrhage [Recovered/Resolved]
